FAERS Safety Report 6114149-9 (Version None)
Quarter: 2009Q1

REPORT INFORMATION
  Report Type: 
  Country: None (occurrence: None)
  Receive Date: 20090312
  Receipt Date: 20080521
  Transmission Date: 20090719
  Serious: No
  Sender: FDA-Public Use
  Company Number: US-ABBOTT-08P-163-0452656-00

PATIENT
  Sex: Male
  Weight: 59.02 kg

DRUGS (7)
  1. DEPAKOTE [Suspect]
     Indication: EPILEPSY
     Dosage: 3-250MG TABS THREE TIMES DAILY
     Route: 048
     Dates: start: 19980101
  2. ACEPAZOLAMIDE [Concomitant]
     Indication: CONVULSION
     Dates: start: 20080401
  3. LEVETIRACETAM [Concomitant]
     Indication: CONVULSION
     Route: 048
     Dates: start: 20060101
  4. CETIRIZINE HYDROCHLORIDE [Concomitant]
     Indication: HYPERSENSITIVITY
     Route: 048
  5. FOLIC ACID [Concomitant]
     Indication: DRUG USE FOR UNKNOWN INDICATION
  6. CENTRUM VITAMIN [Concomitant]
     Indication: DRUG USE FOR UNKNOWN INDICATION
  7. MELATONIN [Concomitant]
     Indication: INSOMNIA

REACTIONS (3)
  - GINGIVAL DISORDER [None]
  - GINGIVAL PAIN [None]
  - MASTICATION DISORDER [None]
